FAERS Safety Report 19767760 (Version 3)
Quarter: 2021Q4

REPORT INFORMATION
  Report Type: Report from Study
  Country: US (occurrence: None)
  Receive Date: 20210831
  Receipt Date: 20211101
  Transmission Date: 20220303
  Serious: Yes (Hospitalization)
  Sender: FDA-Public Use
  Company Number: US-ROCHE-2898582

PATIENT
  Age: 77 Year
  Sex: Female
  Weight: 58.7 kg

DRUGS (11)
  1. VENETOCLAX [Suspect]
     Active Substance: VENETOCLAX
     Indication: Mantle cell lymphoma
     Dosage: ON DAY 2-14 (CYCLES 2-6)
     Route: 048
     Dates: start: 20210518, end: 20210818
  2. OBINUTUZUMAB [Suspect]
     Active Substance: OBINUTUZUMAB
     Indication: Mantle cell lymphoma
     Dosage: ON DAY 1 - 2 (CYCLES 1-6)
     Route: 042
     Dates: start: 20210423, end: 20210807
  3. PREDNISONE [Suspect]
     Active Substance: PREDNISONE
     Indication: Mantle cell lymphoma
     Dosage: ON DAY 1 - 7
     Route: 048
     Dates: start: 20210423, end: 20210812
  4. LENALIDOMIDE [Suspect]
     Active Substance: LENALIDOMIDE
     Indication: Mantle cell lymphoma
     Dosage: ON DAY 1-14 (CYCLES 1-6)
     Route: 048
     Dates: start: 20210423, end: 20210818
  5. IBRUTINIB [Suspect]
     Active Substance: IBRUTINIB
     Indication: Mantle cell lymphoma
     Dosage: ON DAY 1 - 14
     Route: 048
     Dates: start: 20210423, end: 20210818
  6. METFORMIN HYDROCHLORIDE [Concomitant]
     Active Substance: METFORMIN HYDROCHLORIDE
  7. ATORVASTATIN [Concomitant]
     Active Substance: ATORVASTATIN
  8. LOSARTAN [Concomitant]
     Active Substance: LOSARTAN
  9. CALCITRIOL [Concomitant]
     Active Substance: CALCITRIOL
  10. HYDRALAZINE [Concomitant]
     Active Substance: HYDRALAZINE HYDROCHLORIDE
     Indication: Hypertension
     Route: 042
  11. ONDANSETRON [Concomitant]
     Active Substance: ONDANSETRON
     Indication: Nausea
     Route: 042

REACTIONS (3)
  - Urinary tract infection [Recovered/Resolved]
  - Bacteraemia [Recovered/Resolved]
  - Syncope [Unknown]

NARRATIVE: CASE EVENT DATE: 20210823
